FAERS Safety Report 16442013 (Version 1)
Quarter: 2019Q2

REPORT INFORMATION
  Report Type: Report from Study
  Country: None (occurrence: US)
  Receive Date: 20190617
  Receipt Date: 20190617
  Transmission Date: 20190711
  Serious: No
  Sender: FDA-Public Use
  Company Number: US-US WORLDMEDS, LLC-USW201811-001706

PATIENT
  Age: 57 Year
  Sex: Male
  Weight: 81.64 kg

DRUGS (11)
  1. DESVENLAFAXINE. [Concomitant]
     Active Substance: DESVENLAFAXINE
  2. RASAGILINE. [Concomitant]
     Active Substance: RASAGILINE
  3. APOKYN [Suspect]
     Active Substance: APOMORPHINE HYDROCHLORIDE
     Indication: PARKINSON^S DISEASE
     Route: 058
     Dates: start: 20181107
  4. APOKYN [Suspect]
     Active Substance: APOMORPHINE HYDROCHLORIDE
     Route: 058
     Dates: start: 20181111
  5. RYTARY [Concomitant]
     Active Substance: CARBIDOPA\LEVODOPA
  6. CLONAZEPAM. [Concomitant]
     Active Substance: CLONAZEPAM
  7. PRAMIPEXOLE. [Concomitant]
     Active Substance: PRAMIPEXOLE
  8. ROBINUL [Concomitant]
     Active Substance: GLYCOPYRROLATE
  9. TIGAN [Concomitant]
     Active Substance: TRIMETHOBENZAMIDE HYDROCHLORIDE
  10. DIHYDROCHLORIDE [Concomitant]
  11. RESTASIS [Concomitant]
     Active Substance: CYCLOSPORINE

REACTIONS (2)
  - Somnolence [Recovered/Resolved]
  - Fall [Recovered/Resolved]

NARRATIVE: CASE EVENT DATE: 20181107
